FAERS Safety Report 4842035-0 (Version None)
Quarter: 2005Q4

REPORT INFORMATION
  Report Type: 
  Country: None (occurrence: None)
  Receive Date: 20051130
  Receipt Date: 20051121
  Transmission Date: 20060501
  Serious: Yes (Death)
  Sender: FDA-Public Use
  Company Number: JP-JNJFOC-20051105658

PATIENT
  Age: 62 Year
  Sex: Female

DRUGS (1)
  1. ITRIZOLE [Suspect]
     Route: 048

REACTIONS (2)
  - ASTHENIA [None]
  - PULMONARY EMBOLISM [None]
